FAERS Safety Report 12988932 (Version 2)
Quarter: 2016Q4

REPORT INFORMATION
  Report Type: Spontaneous
  Country: TW (occurrence: TW)
  Receive Date: 20161201
  Receipt Date: 20161209
  Transmission Date: 20170207
  Serious: Yes (Other)
  Sender: FDA-Public Use
  Company Number: TW-ROCHE-1860250

PATIENT
  Age: 65 Year
  Sex: Male

DRUGS (5)
  1. FLUORESCEIN [Interacting]
     Active Substance: FLUORESCEIN
     Indication: ANGIOGRAM RETINA
     Route: 042
  2. RANIBIZUMAB [Suspect]
     Active Substance: RANIBIZUMAB
     Indication: PRODUCT USED FOR UNKNOWN INDICATION
     Route: 031
  3. VERTEPORFIN [Interacting]
     Active Substance: VERTEPORFIN
     Indication: PRODUCT USED FOR UNKNOWN INDICATION
     Dosage: INTRAVENOUS INFUSION OF 30 ML OVER 10 MINS (6 MG/M2)
     Route: 041
  4. BEVACIZUMAB [Suspect]
     Active Substance: BEVACIZUMAB
     Indication: PRODUCT USED FOR UNKNOWN INDICATION
     Dosage: INTRAVITREAL 7 INJECTIONS
     Route: 031
  5. BEVACIZUMAB [Suspect]
     Active Substance: BEVACIZUMAB
     Dosage: INTRAVITREAL, AFTER 1 HOUR OF PHOTODYNAMIC THERAPY (1.25 MG), QD
     Route: 031

REACTIONS (3)
  - Blindness [Recovered/Resolved]
  - Macular oedema [Recovered/Resolved]
  - Drug interaction [Recovered/Resolved]
